FAERS Safety Report 7124633-7 (Version None)
Quarter: 2010Q4

REPORT INFORMATION
  Report Type: 
  Country: None (occurrence: None)
  Receive Date: 20101122
  Receipt Date: 20101122
  Transmission Date: 20110411
  Serious: Yes (Life-Threatening, Hospitalization)
  Sender: FDA-Public Use
  Company Number: None

PATIENT
  Age: 75 Year
  Sex: Male
  Weight: 59.85 kg

DRUGS (6)
  1. SOTALOL HCL [Suspect]
     Indication: ATRIAL FIBRILLATION
     Dosage: 80 MG TWICE DAILY PO CHRONIC MEDICATION
     Route: 048
  2. SINEMET [Concomitant]
  3. COUMADIN [Concomitant]
  4. LIPITOR [Suspect]
  5. NORVASC [Suspect]
  6. COZAAR [Suspect]

REACTIONS (7)
  - APHASIA [None]
  - DYSARTHRIA [None]
  - DYSPNOEA [None]
  - TORSADE DE POINTES [None]
  - TROPONIN INCREASED [None]
  - VENTRICULAR TACHYCARDIA [None]
  - VIITH NERVE PARALYSIS [None]
